FAERS Safety Report 9401008 (Version 2)
Quarter: 2013Q3

REPORT INFORMATION
  Report Type: Report from Study
  Country: AU (occurrence: AU)
  Receive Date: 20130715
  Receipt Date: 20130716
  Transmission Date: 20140515
  Serious: Yes (Hospitalization)
  Sender: FDA-Public Use
  Company Number: AU-GLAXOSMITHKLINE-B0886475C

PATIENT
  Age: 66 Year
  Sex: Male

DRUGS (3)
  1. ELTROMBOPAG [Suspect]
     Indication: MYELODYSPLASTIC SYNDROME
     Dosage: 100MG PER DAY
     Route: 048
     Dates: start: 20130318
  2. AZACITIDINE [Suspect]
     Indication: MYELODYSPLASTIC SYNDROME
     Dosage: 75MGM2 CYCLIC
     Route: 042
     Dates: start: 20130402
  3. TEICOPLANIN [Concomitant]
     Indication: PROPHYLAXIS
     Dosage: 800MG PER DAY
     Route: 042
     Dates: start: 20130425

REACTIONS (1)
  - Febrile neutropenia [Not Recovered/Not Resolved]
